FAERS Safety Report 5265181-9 (Version None)
Quarter: 2007Q1

REPORT INFORMATION
  Report Type: 
  Country: None (occurrence: None)
  Receive Date: 20061213
  Receipt Date: 20041207
  Transmission Date: 20070707
  Serious: Yes (Hospitalization)
  Sender: FDA-Public Use
  Company Number: 2004UW24990

PATIENT
  Age: 77 Year
  Sex: Female
  Weight: 57.6 kg

DRUGS (3)
  1. NOLVADEX [Suspect]
     Indication: BREAST CANCER
     Dosage: 20 MG QD PO
     Route: 048
     Dates: start: 20000101
  2. WARFARIN SODIUM [Concomitant]
  3. FOSAMAX [Concomitant]

REACTIONS (2)
  - COAGULATION TIME PROLONGED [None]
  - THROMBOSIS [None]
